FAERS Safety Report 16586225 (Version 3)
Quarter: 2019Q3

REPORT INFORMATION
  Report Type: Report from Study
  Country: US (occurrence: US)
  Receive Date: 20190717
  Receipt Date: 20190906
  Transmission Date: 20191004
  Serious: Yes (Other)
  Sender: FDA-Public Use
  Company Number: PHEH2019US029282

PATIENT
  Age: 61 Year
  Sex: Male

DRUGS (2)
  1. GLEEVEC [Suspect]
     Active Substance: IMATINIB MESYLATE
     Indication: PRODUCT USED FOR UNKNOWN INDICATION
     Dosage: UNK
     Route: 048
  2. GLEEVEC [Suspect]
     Active Substance: IMATINIB MESYLATE
     Dosage: 600 MG, QD
     Route: 048
     Dates: start: 20190711, end: 20190711

REACTIONS (12)
  - Arthralgia [Unknown]
  - Cognitive disorder [Unknown]
  - Rash macular [Unknown]
  - Pain in extremity [Unknown]
  - Amnesia [Unknown]
  - Asthenia [Unknown]
  - Eye swelling [Unknown]
  - Somnolence [Unknown]
  - Diarrhoea [Unknown]
  - Myocardial infarction [Unknown]
  - Back pain [Unknown]
  - White blood cell count increased [Unknown]

NARRATIVE: CASE EVENT DATE: 20190711
